FAERS Safety Report 25129370 (Version 1)
Quarter: 2025Q1

REPORT INFORMATION
  Report Type: Spontaneous
  Country: US (occurrence: US)
  Receive Date: 20250327
  Receipt Date: 20250327
  Transmission Date: 20250408
  Serious: Yes (Other)
  Sender: SANOFI AVENTIS
  Company Number: US-DialogSolutions-SAAVPROD-PI749615-C1

PATIENT
  Age: 44 Year
  Sex: Female

DRUGS (16)
  1. INSULIN LISPRO [Suspect]
     Active Substance: INSULIN LISPRO
     Indication: Gestational diabetes
  2. INSULIN LISPRO [Suspect]
     Active Substance: INSULIN LISPRO
  3. FAMOTIDINE [Suspect]
     Active Substance: FAMOTIDINE
  4. INSULIN GLARGINE [Suspect]
     Active Substance: INSULIN GLARGINE
  5. CETIRIZINE HYDROCHLORIDE [Suspect]
     Active Substance: CETIRIZINE HYDROCHLORIDE
  6. CETIRIZINE HYDROCHLORIDE [Suspect]
     Active Substance: CETIRIZINE HYDROCHLORIDE
  7. INSULIN ASPART [Suspect]
     Active Substance: INSULIN ASPART
  8. INSULIN ASPART [Suspect]
     Active Substance: INSULIN ASPART
  9. INSULIN ASPART [Suspect]
     Active Substance: INSULIN ASPART
     Dosage: UNK, TID
  10. EPINEPHRINE [Suspect]
     Active Substance: EPINEPHRINE
     Indication: Drug hypersensitivity
     Route: 030
  11. INSULIN NOS [Suspect]
     Active Substance: INSULIN NOS
     Indication: Gestational diabetes
     Dosage: UNK, QD (LONG ACTING)
  12. INSULIN NOS [Suspect]
     Active Substance: INSULIN NOS
  13. OMALIZUMAB [Suspect]
     Active Substance: OMALIZUMAB
     Dosage: 300 MG, Q4W
  14. OMALIZUMAB [Suspect]
     Active Substance: OMALIZUMAB
  15. INSULIN DEGLUDEC [Suspect]
     Active Substance: INSULIN DEGLUDEC
  16. SODIUM CHLORIDE [Suspect]
     Active Substance: SODIUM CHLORIDE

REACTIONS (9)
  - Drug hypersensitivity [Unknown]
  - Urticaria [Unknown]
  - Swelling face [Unknown]
  - Dyspnoea [Unknown]
  - Chest pain [Unknown]
  - Vomiting [Unknown]
  - Vision blurred [Unknown]
  - Anaphylactic reaction [Unknown]
  - Exposure during pregnancy [Unknown]
